FAERS Safety Report 7487665-5 (Version None)
Quarter: 2011Q2

REPORT INFORMATION
  Report Type: 
  Country: None (occurrence: None)
  Receive Date: 20110511
  Receipt Date: 20110427
  Transmission Date: 20111010
  Serious: Yes (Other)
  Sender: FDA-Public Use
  Company Number: 2011AP000479

PATIENT
  Age: 79 Year
  Sex: Male

DRUGS (15)
  1. NIFEDIPINE [Concomitant]
  2. COLECALCIFEROL (COLECALCIFEROL) [Concomitant]
  3. ACETAMINOPHEN [Concomitant]
  4. METFORMIN (METFORMIN) [Concomitant]
  5. PREDNISOLONE [Concomitant]
  6. TAMSULOSIN HCL [Concomitant]
  7. PERINDOPRIL (PERINDOPRIL) [Concomitant]
  8. SIMVASTATIN [Concomitant]
  9. LACTULOSE [Concomitant]
  10. CALCIUM CARBONATE [Concomitant]
  11. ALENDRONATE SODIUM [Concomitant]
  12. FINASTERIDE [Concomitant]
  13. GLICLAZIDE (GLICLAZIDE) [Concomitant]
  14. LEFLUNOMIDE [Suspect]
     Indication: RHEUMATOID ARTHRITIS
     Dosage: 20 MG;PO
     Route: 048
     Dates: start: 20101201
  15. OMEPRAZOLE [Concomitant]

REACTIONS (4)
  - SKIN DISORDER [None]
  - SKIN ULCER [None]
  - VASCULITIC RASH [None]
  - DIABETIC FOOT [None]
